FAERS Safety Report 7618968-9 (Version None)
Quarter: 2011Q3

REPORT INFORMATION
  Report Type: 
  Country: None (occurrence: None)
  Receive Date: 20110718
  Receipt Date: 20110708
  Transmission Date: 20111222
  Serious: Yes (Death)
  Sender: FDA-Public Use
  Company Number: MX-SANOFI-AVENTIS-2011SA043502

PATIENT
  Age: 76 Year
  Sex: Female

DRUGS (5)
  1. FUROSEMIDE [Concomitant]
     Route: 048
     Dates: end: 20100628
  2. TRAMADOL HCL [Concomitant]
     Indication: PAIN
     Route: 048
     Dates: end: 20100628
  3. ACETYLSALICYLIC ACID SRT [Concomitant]
     Route: 048
     Dates: end: 20100728
  4. LANTUS [Suspect]
     Indication: TYPE 2 DIABETES MELLITUS
     Route: 058
     Dates: start: 20060101, end: 20100628
  5. AMLODIPINE [Concomitant]
     Route: 048
     Dates: end: 20100628

REACTIONS (1)
  - CARDIAC ARREST [None]
